FAERS Safety Report 8325269-2 (Version None)
Quarter: 2012Q2

REPORT INFORMATION
  Report Type: 
  Country: None (occurrence: None)
  Receive Date: 20120501
  Receipt Date: 20120419
  Transmission Date: 20120825
  Serious: Yes (Other)
  Sender: FDA-Public Use
  Company Number: JP-ASTRAZENECA-2012SE27381

PATIENT
  Age: 25210 Day
  Sex: Male

DRUGS (8)
  1. ZYPREXA [Suspect]
     Route: 048
  2. VFEND [Suspect]
     Route: 048
  3. MEDICON [Concomitant]
     Route: 048
  4. LANSOPRAZOLE [Concomitant]
     Route: 048
  5. COTRIM [Concomitant]
     Route: 048
  6. MEROPENEM [Suspect]
     Indication: FEBRILE NEUTROPENIA
     Route: 042
     Dates: start: 20110822, end: 20110903
  7. VANCOMYCIN HYDROCHLORIDE [Suspect]
     Route: 042
     Dates: start: 20110831, end: 20110903
  8. MUCOSTA [Concomitant]
     Route: 048

REACTIONS (2)
  - LIVER DISORDER [None]
  - RENAL DISORDER [None]
